FAERS Safety Report 7448305-4 (Version None)
Quarter: 2011Q2

REPORT INFORMATION
  Report Type: 
  Country: None (occurrence: None)
  Receive Date: 20110429
  Receipt Date: 20110119
  Transmission Date: 20111010
  Serious: Yes (Other)
  Sender: FDA-Public Use
  Company Number: JP-PFIZER INC-2011092792

PATIENT
  Age: 75 Year
  Sex: Male

DRUGS (1)
  1. MIGLITOL [Suspect]
     Dosage: 225 MG/DAY
     Route: 048
     Dates: start: 20101027, end: 20101202

REACTIONS (2)
  - LIVER FUNCTION TEST ABNORMAL [None]
  - LIVER DISORDER [None]
